FAERS Safety Report 5013750-3 (Version None)
Quarter: 2006Q2

REPORT INFORMATION
  Report Type: 
  Country: None (occurrence: None)
  Receive Date: 20060530
  Receipt Date: 20060426
  Transmission Date: 20061013
  Serious: Yes (Other)
  Sender: FDA-Public Use
  Company Number: JP-AVENTIS-200611373JP

PATIENT
  Age: 62 Year
  Sex: Male

DRUGS (5)
  1. ALLEGRA [Suspect]
     Indication: RHINITIS SEASONAL
     Route: 048
     Dates: start: 20060323, end: 20060422
  2. ALLEGRA [Suspect]
     Indication: CONJUNCTIVITIS
     Route: 048
     Dates: start: 20060323, end: 20060422
  3. AMLODIN [Concomitant]
     Indication: HYPERTENSION
     Route: 048
     Dates: start: 20050527
  4. ZYRTEC [Concomitant]
     Indication: RHINITIS ALLERGIC
     Dates: start: 20060120, end: 20060322
  5. ZYRTEC [Concomitant]
     Indication: CONJUNCTIVITIS ALLERGIC
     Dates: start: 20060120, end: 20060322

REACTIONS (3)
  - JAUNDICE [None]
  - LIVER DISORDER [None]
  - LIVER FUNCTION TEST ABNORMAL [None]
